FAERS Safety Report 13523759 (Version 1)
Quarter: 2017Q2

REPORT INFORMATION
  Report Type: Spontaneous
  Country: US (occurrence: US)
  Receive Date: 20170508
  Receipt Date: 20170508
  Transmission Date: 20170830
  Serious: No
  Sender: FDA-Public Use
  Company Number: US-VIFOR (INTERNATIONAL) INC.-VIT-2017-03045

PATIENT
  Sex: Female

DRUGS (18)
  1. CLOPIDOGREL BISULFATE. [Concomitant]
     Active Substance: CLOPIDOGREL BISULFATE
  2. RENVELA [Concomitant]
     Active Substance: SEVELAMER CARBONATE
  3. PARACETAMOL [Concomitant]
     Active Substance: ACETAMINOPHEN
  4. LANTUS [Concomitant]
     Active Substance: INSULIN GLARGINE
  5. ACETYLSALICYLIC ACID [Concomitant]
     Active Substance: ASPIRIN
  6. CARVEDILOL. [Concomitant]
     Active Substance: CARVEDILOL
  7. HYDROXYZINE HYDROCHLORIDE. [Concomitant]
     Active Substance: HYDROXYZINE HYDROCHLORIDE
  8. NITROSTAT [Concomitant]
     Active Substance: NITROGLYCERIN
  9. XANAX [Concomitant]
     Active Substance: ALPRAZOLAM
  10. VELTASSA [Suspect]
     Active Substance: PATIROMER
     Indication: HYPERKALAEMIA
     Route: 065
  11. ATORVASTATIN CALCIUM. [Concomitant]
     Active Substance: ATORVASTATIN CALCIUM
  12. INSULIN [Concomitant]
     Active Substance: INSULIN NOS
  13. LATANOPROST. [Concomitant]
     Active Substance: LATANOPROST
  14. RISPERIDONE. [Concomitant]
     Active Substance: RISPERIDONE
  15. NORCO [Concomitant]
     Active Substance: ACETAMINOPHEN\HYDROCODONE BITARTRATE
  16. OMEPRAZOLE. [Concomitant]
     Active Substance: OMEPRAZOLE
  17. GABAPENTIN. [Concomitant]
     Active Substance: GABAPENTIN
  18. LISINOPRIL. [Concomitant]
     Active Substance: LISINOPRIL

REACTIONS (1)
  - Frequent bowel movements [Unknown]
